FAERS Safety Report 24343262 (Version 1)
Quarter: 2024Q3

REPORT INFORMATION
  Report Type: Spontaneous
  Country: US (occurrence: None)
  Receive Date: 20240920
  Receipt Date: 20240920
  Transmission Date: 20241016
  Serious: Yes (Hospitalization)
  Sender: Public
  Company Number: None

PATIENT
  Sex: Female

DRUGS (11)
  1. EVEROLIMUS [Suspect]
     Active Substance: EVEROLIMUS
     Indication: Renal transplant
     Dosage: FREQ: TAKE 1 TABLET (1 MG) BY MOUTH TWO TIMES DAILY
     Route: 048
     Dates: start: 20240625
  2. ATORVASTATIN [Concomitant]
     Active Substance: ATORVASTATIN
  3. CITALOPRAM [Concomitant]
     Active Substance: CITALOPRAM
  4. EVEROLIMUS [Concomitant]
     Active Substance: EVEROLIMUS
  5. FUROSEMIDE [Concomitant]
     Active Substance: FUROSEMIDE
  6. MYCOPENOLAT [Concomitant]
  7. MYCOPHENOLATE MOFETIL [Concomitant]
  8. OMEPRAZOLE [Concomitant]
  9. OXYCODONE [Concomitant]
     Active Substance: OXYCODONE
  10. PREDNISONE [Concomitant]
     Active Substance: PREDNISONE
  11. TACROLIMUS [Concomitant]
     Active Substance: TACROLIMUS

REACTIONS (1)
  - COVID-19 pneumonia [None]
